FAERS Safety Report 6924080-4 (Version None)
Quarter: 2010Q3

REPORT INFORMATION
  Report Type: 
  Country: None (occurrence: None)
  Receive Date: 20100813
  Receipt Date: 20100803
  Transmission Date: 20110219
  Serious: Yes (Disabling, Other)
  Sender: FDA-Public Use
  Company Number: US-WYE-H15485710

PATIENT
  Sex: Female

DRUGS (5)
  1. EFFEXOR [Suspect]
     Indication: BIPOLAR I DISORDER
     Route: 048
     Dates: start: 20030101
  2. OXYGEN [Concomitant]
  3. PREDNISONE [Concomitant]
  4. ZOLOFT [Concomitant]
     Indication: BIPOLAR I DISORDER
     Route: 048
  5. LYRICA [Suspect]
     Indication: PAIN
     Route: 048
     Dates: start: 20090101, end: 20090101

REACTIONS (6)
  - GAIT DISTURBANCE [None]
  - LUNG NEOPLASM [None]
  - NEOPLASM [None]
  - OSTEOARTHRITIS [None]
  - OSTEONECROSIS [None]
  - OSTEOPOROSIS [None]
